FAERS Safety Report 9642737 (Version 1)
Quarter: 2013Q4

REPORT INFORMATION
  Report Type: Spontaneous
  Country: US (occurrence: US)
  Receive Date: 20131024
  Receipt Date: 20131024
  Transmission Date: 20140711
  Serious: No
  Sender: FDA-Public Use
  Company Number: US-PFIZER INC-2013302107

PATIENT
  Sex: Female

DRUGS (2)
  1. CYTOMEL [Suspect]
     Dosage: 2.5
  2. LEVOTHYROXINE [Suspect]
     Dosage: 50 UG, UNK

REACTIONS (4)
  - Drug ineffective [Unknown]
  - Alopecia [Unknown]
  - Activities of daily living impaired [Unknown]
  - Confusional state [Unknown]
